FAERS Safety Report 13076903 (Version 1)
Quarter: 2016Q4

REPORT INFORMATION
  Report Type: Spontaneous
  Country: GB (occurrence: GB)
  Receive Date: 20161230
  Receipt Date: 20161230
  Transmission Date: 20170207
  Serious: Yes (Other)
  Sender: FDA-Public Use
  Company Number: GB-PFIZER INC-2016601905

PATIENT
  Age: 40 Year
  Sex: Female

DRUGS (4)
  1. HUMIRA [Suspect]
     Active Substance: ADALIMUMAB
     Indication: PREGNANCY
  2. FRAGMIN [Suspect]
     Active Substance: DALTEPARIN SODIUM
     Indication: PREGNANCY
  3. PROGESTERONE. [Suspect]
     Active Substance: PROGESTERONE
     Indication: PREGNANCY
  4. ASPIRIN /00002701/ [Suspect]
     Active Substance: ASPIRIN
     Indication: PREGNANCY

REACTIONS (6)
  - Haemorrhage in pregnancy [Recovered/Resolved]
  - Fallopian tube disorder [Unknown]
  - Surgical failure [Unknown]
  - Product use issue [Unknown]
  - Vomiting in pregnancy [Unknown]
  - Abortion spontaneous [Unknown]

NARRATIVE: CASE EVENT DATE: 2016
